FAERS Safety Report 9009251 (Version 1)
Quarter: 2013Q1

REPORT INFORMATION
  Report Type: Spontaneous
  Country: US (occurrence: US)
  Receive Date: 20130111
  Receipt Date: 20130111
  Transmission Date: 20140127
  Serious: Yes (Hospitalization)
  Sender: FDA-Public Use
  Company Number: US-GLAXOSMITHKLINE-A0848989A

PATIENT
  Sex: Male
  Weight: 118.2 kg

DRUGS (9)
  1. AVANDIA [Suspect]
     Indication: DIABETES MELLITUS
     Dosage: 4MG PER DAY
     Route: 048
  2. AVANDAMET [Suspect]
     Indication: DIABETES MELLITUS
     Route: 048
  3. HYDROCODONE [Concomitant]
  4. LIPITOR [Concomitant]
  5. PAXIL [Concomitant]
  6. ZYRTEC [Concomitant]
  7. PREVACID [Concomitant]
  8. HUMULIN R [Concomitant]
  9. NPH [Concomitant]

REACTIONS (5)
  - Coronary artery disease [Unknown]
  - Myocardial infarction [Unknown]
  - Cardiac failure congestive [Unknown]
  - Pulmonary embolism [Unknown]
  - Angina pectoris [Unknown]
